FAERS Safety Report 24797539 (Version 1)
Quarter: 2025Q1

REPORT INFORMATION
  Report Type: Spontaneous
  Country: US (occurrence: US)
  Receive Date: 20250102
  Receipt Date: 20250102
  Transmission Date: 20250409
  Serious: Yes (Hospitalization)
  Sender: EMCURE PHARMACEUTICALS LTD
  Company Number: US-AVET LIFESCIENCES LTD-2024-AVET-000480

PATIENT
  Sex: Male

DRUGS (2)
  1. LISINOPRIL [Interacting]
     Active Substance: LISINOPRIL
  2. AMLODIPINE [Interacting]
     Active Substance: AMLODIPINE BESYLATE

REACTIONS (3)
  - Overdose [Unknown]
  - Toxicity to various agents [Unknown]
  - Drug interaction [Unknown]
